FAERS Safety Report 7236238-8 (Version None)
Quarter: 2011Q1

REPORT INFORMATION
  Report Type: 
  Country: None (occurrence: None)
  Receive Date: 20110120
  Receipt Date: 20110110
  Transmission Date: 20110831
  Serious: Yes (Other)
  Sender: FDA-Public Use
  Company Number: US-MERCK-1101USA00821

PATIENT
  Age: 76 Year
  Sex: Male

DRUGS (5)
  1. PLAVIX [Concomitant]
     Route: 065
  2. COZAAR [Suspect]
     Route: 048
     Dates: start: 20101229
  3. TOPROL-XL [Concomitant]
     Route: 065
  4. OMEPRAZOLE [Concomitant]
     Route: 065
  5. COZAAR [Suspect]
     Indication: HYPERTENSION
     Route: 048
     Dates: start: 20060501

REACTIONS (5)
  - AORTIC VALVE DISEASE [None]
  - FATIGUE [None]
  - DIZZINESS [None]
  - MYOCARDIAL INFARCTION [None]
  - FEELING ABNORMAL [None]
